FAERS Safety Report 15959114 (Version 1)
Quarter: 2019Q1

REPORT INFORMATION
  Report Type: Spontaneous
  Country: CA (occurrence: CA)
  Receive Date: 20190214
  Receipt Date: 20190214
  Transmission Date: 20190417
  Serious: Yes (Other)
  Sender: FDA-Public Use
  Company Number: CA-TEVA-2019-CA-1012609

PATIENT
  Age: 84 Year
  Sex: Female

DRUGS (4)
  1. LAMOTRIGINE. [Concomitant]
     Active Substance: LAMOTRIGINE
  2. ORENCIA [Concomitant]
     Active Substance: ABATACEPT
  3. METHOTREXATE. [Suspect]
     Active Substance: METHOTREXATE
     Indication: RHEUMATOID ARTHRITIS
     Route: 065
  4. TYLENOL ARTHRITIS PAIN 8HOUR [Concomitant]

REACTIONS (8)
  - Haemorrhage [Unknown]
  - Calcinosis [Unknown]
  - Seizure [Unknown]
  - Drug ineffective [Unknown]
  - Eye disorder [Unknown]
  - Cerebrovascular accident [Unknown]
  - Limb injury [Unknown]
  - Vein disorder [Unknown]
